FAERS Safety Report 12803946 (Version 1)
Quarter: 2016Q4

REPORT INFORMATION
  Report Type: Spontaneous
  Country: GR (occurrence: GR)
  Receive Date: 20161003
  Receipt Date: 20161003
  Transmission Date: 20170207
  Serious: Yes (Death, Hospitalization)
  Sender: FDA-Public Use
  Company Number: GR-PFIZER INC-2016450676

PATIENT
  Age: 45 Year
  Sex: Female

DRUGS (2)
  1. ETHYLENE GLYCOL [Suspect]
     Active Substance: ETHYLENE GLYCOL
     Dosage: UNK
  2. XANAX [Suspect]
     Active Substance: ALPRAZOLAM
     Dosage: UNK

REACTIONS (1)
  - Completed suicide [Fatal]
